FAERS Safety Report 13922514 (Version 1)
Quarter: 2017Q3

REPORT INFORMATION
  Report Type: Spontaneous
  Country: US (occurrence: US)
  Receive Date: 20170830
  Receipt Date: 20170830
  Transmission Date: 20171127
  Serious: Yes (Death)
  Sender: FDA-Public Use
  Company Number: US-BAYER-2017-159167

PATIENT
  Age: 64 Year
  Sex: Male
  Weight: 77.96 kg

DRUGS (2)
  1. BAYER ASPIRIN [Suspect]
     Active Substance: ASPIRIN
     Indication: AORTIC ANEURYSM
     Dosage: 1 DF, UNK
     Route: 048
     Dates: start: 1985, end: 2005
  2. CENTRUM SILVER [Concomitant]
     Active Substance: MINERALS\VITAMINS

REACTIONS (6)
  - Product use issue [None]
  - Dyspepsia [Recovered/Resolved]
  - Incorrect drug administration duration [None]
  - Product use in unapproved indication [Unknown]
  - Myocardial infarction [Fatal]
  - Abdominal pain upper [Unknown]

NARRATIVE: CASE EVENT DATE: 2005
